FAERS Safety Report 9626734 (Version 1)
Quarter: 2013Q4

REPORT INFORMATION
  Report Type: Report from Study
  Country: IT (occurrence: IT)
  Receive Date: 20131016
  Receipt Date: 20131016
  Transmission Date: 20140711
  Serious: Yes (Other)
  Sender: FDA-Public Use
  Company Number: IT-ACTELION-A-CH2013-89731

PATIENT
  Age: 32 Year
  Sex: Female
  Weight: 60 kg

DRUGS (4)
  1. TRACLEER [Suspect]
     Indication: SKIN ULCER
     Dosage: 125 MG, BID
     Route: 048
     Dates: start: 20100115, end: 20121030
  2. IMATINIB [Concomitant]
  3. CARDIO ASPIRIN [Concomitant]
  4. ADALAT CRONO [Concomitant]

REACTIONS (5)
  - Premature delivery [Unknown]
  - Caesarean section [Unknown]
  - Pregnancy [Unknown]
  - Foetal growth restriction [Unknown]
  - Drug interaction [Unknown]
